FAERS Safety Report 21906529 (Version 2)
Quarter: 2023Q1

REPORT INFORMATION
  Report Type: Spontaneous
  Country: AR (occurrence: AR)
  Receive Date: 20230125
  Receipt Date: 20230319
  Transmission Date: 20230418
  Serious: Yes (Disabling, Other)
  Sender: FDA-Public Use
  Company Number: AR-PFIZER INC-PV202300012242

PATIENT
  Age: 74 Year
  Sex: Female

DRUGS (1)
  1. ENBREL [Suspect]
     Active Substance: ETANERCEPT
     Indication: Rheumatoid arthritis
     Dosage: 50 MG, WEEKLY
     Route: 065
     Dates: start: 20180509

REACTIONS (3)
  - Visual impairment [Not Recovered/Not Resolved]
  - Wheelchair user [Not Recovered/Not Resolved]
  - Mobility decreased [Not Recovered/Not Resolved]
